FAERS Safety Report 19982782 (Version 1)
Quarter: 2021Q4

REPORT INFORMATION
  Report Type: Report from Study
  Country: CA (occurrence: CA)
  Receive Date: 20211021
  Receipt Date: 20211021
  Transmission Date: 20220303
  Serious: Yes (Hospitalization, Other)
  Sender: FDA-Public Use
  Company Number: CA-SA-2020SA054368

PATIENT
  Age: 70 Year
  Sex: Female

DRUGS (18)
  1. SARILUMAB [Suspect]
     Active Substance: SARILUMAB
     Indication: Rheumatoid arthritis
     Dosage: 200 MG, QOW
     Route: 058
     Dates: start: 20190702
  2. SARILUMAB [Suspect]
     Active Substance: SARILUMAB
     Dosage: 200 MG QOW
     Route: 058
     Dates: start: 20200608, end: 2020
  3. ARAVA [Concomitant]
     Active Substance: LEFLUNOMIDE
     Dosage: UNK
     Dates: start: 20140101
  4. TYLENOL [Concomitant]
     Active Substance: ACETAMINOPHEN
  5. TYLENOL [Concomitant]
     Active Substance: ACETAMINOPHEN
  6. PERINDOPRIL [Concomitant]
     Active Substance: PERINDOPRIL
     Dosage: 4 MG, UNK
  7. AMLODIPINE [Concomitant]
     Active Substance: AMLODIPINE BESYLATE
     Dosage: 10 MG, QD
  8. AMLODIPINE [Concomitant]
     Active Substance: AMLODIPINE BESYLATE
  9. BISOPROLOL [Concomitant]
     Active Substance: BISOPROLOL
  10. BISOPROLOL [Concomitant]
     Active Substance: BISOPROLOL
  11. CELEBREX [Concomitant]
     Active Substance: CELECOXIB
     Dosage: UNK, PRN
  12. FOLIC ACID [Concomitant]
     Active Substance: FOLIC ACID
  13. VITAMIN B6 [Concomitant]
     Active Substance: PYRIDOXINE HYDROCHLORIDE
  14. LECITHIN [Concomitant]
     Active Substance: LECITHIN
  15. ONE A DAY [CYANOCOBALAMIN;ERGOCALCIFEROL;NICOTINAMIDE;PYRIDOXINE HYDRO [Concomitant]
  16. ASPIRIN [Concomitant]
     Active Substance: ASPIRIN
  17. INDAPAMIDE [Concomitant]
     Active Substance: INDAPAMIDE
     Dosage: UNK
  18. INDAPAMIDE [Concomitant]
     Active Substance: INDAPAMIDE

REACTIONS (11)
  - Pulmonary fibrosis [Not Recovered/Not Resolved]
  - Haematemesis [Not Recovered/Not Resolved]
  - Ulcer haemorrhage [Not Recovered/Not Resolved]
  - Pneumonia [Not Recovered/Not Resolved]
  - Knee arthroplasty [Unknown]
  - Central venous catheterisation [Not Recovered/Not Resolved]
  - Movement disorder [Not Recovered/Not Resolved]
  - Rheumatoid nodule [Not Recovered/Not Resolved]
  - Procedural pain [Not Recovered/Not Resolved]
  - Knee arthroplasty [Unknown]
  - Epidural injection [Unknown]

NARRATIVE: CASE EVENT DATE: 20200101
